FAERS Safety Report 7225443-2 (Version None)
Quarter: 2011Q1

REPORT INFORMATION
  Report Type: 
  Country: None (occurrence: None)
  Receive Date: 20110113
  Receipt Date: 20101216
  Transmission Date: 20110831
  Serious: Yes (Other)
  Sender: FDA-Public Use
  Company Number: US-BAYER-200943895NA

PATIENT
  Sex: Female

DRUGS (2)
  1. YAZ [Suspect]
     Indication: PREMENSTRUAL SYNDROME
     Dosage: UNK
     Dates: start: 20070607
  2. SARAFEM [Concomitant]
     Dosage: UNK

REACTIONS (4)
  - HOT FLUSH [None]
  - COITAL BLEEDING [None]
  - MENOMETRORRHAGIA [None]
  - CHOLECYSTECTOMY [None]
